FAERS Safety Report 14803581 (Version 3)
Quarter: 2018Q3

REPORT INFORMATION
  Report Type: Report from Study
  Country: US (occurrence: US)
  Receive Date: 20180425
  Receipt Date: 20180719
  Transmission Date: 20181010
  Serious: Yes (Death, Hospitalization, Other)
  Sender: FDA-Public Use
  Company Number: US-B.I. PHARMACEUTICALS,INC./RIDGEFIELD-2017-BI-021347

PATIENT
  Sex: Female

DRUGS (2)
  1. GILOTRIF [Suspect]
     Active Substance: AFATINIB
     Indication: NON-SMALL CELL LUNG CANCER
     Route: 048
     Dates: start: 20160414
  2. GILOTRIF [Suspect]
     Active Substance: AFATINIB
     Route: 048

REACTIONS (10)
  - Dysphagia [Not Recovered/Not Resolved]
  - Nervous system disorder [Not Recovered/Not Resolved]
  - Cerebral haemorrhage [Unknown]
  - Cerebrovascular accident [Unknown]
  - Cerebrovascular accident [Not Recovered/Not Resolved]
  - Cardiovascular disorder [Unknown]
  - Cerebrovascular accident [Fatal]
  - Hip arthroplasty [Unknown]
  - Arthralgia [Unknown]
  - Nail discolouration [Unknown]
